FAERS Safety Report 20857486 (Version 2)
Quarter: 2022Q3

REPORT INFORMATION
  Report Type: Spontaneous
  Country: US (occurrence: US)
  Receive Date: 20220520
  Receipt Date: 20220911
  Transmission Date: 20221027
  Serious: No
  Sender: FDA-Public Use
  Company Number: US-SA-SAC20220517001891

PATIENT
  Age: 80 Year
  Sex: Male

DRUGS (11)
  1. DUPIXENT [Suspect]
     Active Substance: DUPILUMAB
     Indication: Dermatitis atopic
     Dosage: 600 MG, 1X
     Route: 058
     Dates: start: 20220502, end: 20220502
  2. FINASTERIDE [Concomitant]
     Active Substance: FINASTERIDE
  3. ALFUZOSIN [Concomitant]
     Active Substance: ALFUZOSIN
  4. PRIMIDONE [Concomitant]
     Active Substance: PRIMIDONE
  5. ALLOPURINOL [Concomitant]
     Active Substance: ALLOPURINOL
  6. CALCITONIN SALMON [Concomitant]
     Active Substance: CALCITONIN SALMON
  7. CYCLOBENZAPRINE [Concomitant]
     Active Substance: CYCLOBENZAPRINE
  8. KETOCONAZOLE [Concomitant]
     Active Substance: KETOCONAZOLE
  9. FLUOCINONIDE [Concomitant]
     Active Substance: FLUOCINONIDE
  10. TESTOSTERONE CYPIONATE [Concomitant]
     Active Substance: TESTOSTERONE CYPIONATE
  11. ADVAIR HFA [Concomitant]
     Active Substance: FLUTICASONE PROPIONATE\SALMETEROL XINAFOATE

REACTIONS (3)
  - Dry skin [Unknown]
  - Pruritus [Unknown]
  - Skin exfoliation [Unknown]

NARRATIVE: CASE EVENT DATE: 20220501
